FAERS Safety Report 5854744-5 (Version None)
Quarter: 2008Q3

REPORT INFORMATION
  Report Type: 
  Country: None (occurrence: None)
  Receive Date: 20080822
  Receipt Date: 20071227
  Transmission Date: 20090109
  Serious: No
  Sender: FDA-Public Use
  Company Number: US-ABBOTT-08P-163-0432213-00

PATIENT
  Sex: Female
  Weight: 65.376 kg

DRUGS (3)
  1. SYNTHROID [Suspect]
     Indication: HYPOTHYROIDISM
     Route: 048
     Dates: start: 20071220, end: 20071227
  2. SYNTHROID [Suspect]
     Indication: HYPOTHYROIDISM
     Route: 048
     Dates: start: 19900101, end: 20071220
  3. SYNTHROID [Suspect]
     Route: 048
     Dates: start: 20071227

REACTIONS (4)
  - ANXIETY [None]
  - FATIGUE [None]
  - MEDICATION ERROR [None]
  - UNDERDOSE [None]
